FAERS Safety Report 5085513-4 (Version None)
Quarter: 2006Q3

REPORT INFORMATION
  Report Type: 
  Country: None (occurrence: None)
  Receive Date: 20060817
  Receipt Date: 20060803
  Transmission Date: 20061208
  Serious: Yes (Other)
  Sender: FDA-Public Use
  Company Number: 2006096979

PATIENT
  Age: 44 Year
  Sex: Male
  Weight: 131.5431 kg

DRUGS (1)
  1. BEXTRA [Suspect]
     Indication: ARTHRALGIA
     Dosage: 29 MG, 1 IN 1 D)
     Dates: start: 20000101, end: 20030101

REACTIONS (3)
  - RENAL DISORDER [None]
  - SECRETION DISCHARGE [None]
  - SKIN LESION [None]
